FAERS Safety Report 5522976-1 (Version None)
Quarter: 2007Q4

REPORT INFORMATION
  Report Type: 
  Country: None (occurrence: None)
  Receive Date: 20071121
  Receipt Date: 20071113
  Transmission Date: 20080405
  Serious: Yes (Hospitalization)
  Sender: FDA-Public Use
  Company Number: PHHO2007US18039

PATIENT
  Sex: Male
  Weight: 85.3 kg

DRUGS (2)
  1. MYCOPHENOLATE MOFETIL [Suspect]
     Indication: HEART TRANSPLANT
     Dosage: 0.75 MG, BID
     Route: 048
     Dates: start: 20070809
  2. NEORAL [Suspect]
     Indication: HEART TRANSPLANT

REACTIONS (4)
  - CHEST PAIN [None]
  - CYST [None]
  - PERICARDIAL EFFUSION [None]
  - PSEUDOMONAS INFECTION [None]
